FAERS Safety Report 16702220 (Version 2)
Quarter: 2019Q3

REPORT INFORMATION
  Report Type: Spontaneous
  Country: AT (occurrence: AT)
  Receive Date: 20190814
  Receipt Date: 20190926
  Transmission Date: 20191004
  Serious: Yes (Hospitalization, Other)
  Sender: FDA-Public Use
  Company Number: AT-PFIZER INC-2019338593

PATIENT
  Age: 72 Year
  Sex: Female

DRUGS (19)
  1. CLOMIPRAMIN [Suspect]
     Active Substance: CLOMIPRAMINE
     Dosage: 12.5 MG, 1X/DAY(AMPOULES)
     Route: 042
  2. LAMOTRIGIN [Suspect]
     Active Substance: LAMOTRIGINE
     Indication: SEDATION
     Dosage: UNK
     Route: 065
  3. CLOMIPRAMIN [Suspect]
     Active Substance: CLOMIPRAMINE
     Dosage: 25 MG, 1X/DAY (AMPOULES)
     Route: 042
  4. ZOLPIDEM [Suspect]
     Active Substance: ZOLPIDEM TARTRATE
     Indication: INSOMNIA
     Route: 065
  5. DULOXETINE. [Suspect]
     Active Substance: DULOXETINE
     Dosage: UNK
     Route: 048
  6. DULOXETINE. [Suspect]
     Active Substance: DULOXETINE
     Dosage: UNK
     Route: 048
  7. MOCLOBEMID [Suspect]
     Active Substance: MOCLOBEMIDE
     Dosage: UNK
     Route: 065
  8. DIAZEPAM. [Suspect]
     Active Substance: DIAZEPAM
     Indication: SEDATION
     Dosage: 24 MG, 1X/DAY
     Route: 048
  9. CLOMIPRAMIN [Suspect]
     Active Substance: CLOMIPRAMINE
     Dosage: UNK
     Route: 048
  10. QUETIAPIN [Suspect]
     Active Substance: QUETIAPINE
     Dosage: UNK
     Route: 065
  11. TOPIRAMAT [Suspect]
     Active Substance: TOPIRAMATE
     Indication: THROMBOSIS PROPHYLAXIS
     Dosage: UNK
     Route: 065
  12. AMITRIPTYLINE HYDROCHLORIDE. [Suspect]
     Active Substance: AMITRIPTYLINE HYDROCHLORIDE
     Indication: INSOMNIA
     Dosage: UNK
     Route: 065
  13. CLOMIPRAMIN RETARD [Suspect]
     Active Substance: CLOMIPRAMINE HYDROCHLORIDE
     Dosage: 150 MG, 1X/DAY
     Route: 048
  14. CLOMIPRAMIN RETARD [Suspect]
     Active Substance: CLOMIPRAMINE HYDROCHLORIDE
     Dosage: 75 MG, 1X/DAY
     Route: 048
  15. PREGABALIN. [Suspect]
     Active Substance: PREGABALIN
     Route: 065
  16. MIRTAZAPINE. [Suspect]
     Active Substance: MIRTAZAPINE
     Dosage: 30 MG, 1X/DAY
     Route: 065
  17. LITHIUM. [Suspect]
     Active Substance: LITHIUM
     Dosage: UNK
     Route: 065
  18. ENOXAPARIN [Suspect]
     Active Substance: ENOXAPARIN
     Indication: THROMBOSIS PROPHYLAXIS
     Dosage: 40 MG, 1X/DAY
     Route: 058
  19. MAPROTILIN [Suspect]
     Active Substance: MAPROTILINE
     Dosage: UNK
     Route: 065

REACTIONS (21)
  - Suicidal ideation [Unknown]
  - Feeling abnormal [Unknown]
  - Dizziness [Unknown]
  - Decreased activity [Unknown]
  - Disturbance in attention [Unknown]
  - Palpitations [Unknown]
  - Chest discomfort [Unknown]
  - Abdominal discomfort [Unknown]
  - Drug ineffective [Unknown]
  - Restlessness [Unknown]
  - Depression [Unknown]
  - Tremor [Unknown]
  - Tachycardia [Unknown]
  - Sleep disorder [Unknown]
  - Weight decreased [Unknown]
  - Hypotension [Unknown]
  - Decreased appetite [Unknown]
  - Decreased interest [Unknown]
  - Depressed mood [Unknown]
  - Nausea [Unknown]
  - Fracture [Unknown]

NARRATIVE: CASE EVENT DATE: 2014
